FAERS Safety Report 6873242-3 (Version None)
Quarter: 2010Q3

REPORT INFORMATION
  Report Type: 
  Country: None (occurrence: None)
  Receive Date: 20100723
  Receipt Date: 20081222
  Transmission Date: 20110219
  Serious: No
  Sender: FDA-Public Use
  Company Number: US-PFIZER INC-2008158317

PATIENT
  Age: 52 Year
  Sex: Female
  Weight: 53.6 kg

DRUGS (5)
  1. CHANTIX [Suspect]
     Dosage: UNK
     Dates: start: 20080101, end: 20080101
  2. XOPENEX [Concomitant]
     Indication: CHRONIC OBSTRUCTIVE PULMONARY DISEASE
     Dosage: UNK
     Dates: start: 20080101
  3. XOPENEX [Concomitant]
     Indication: EMPHYSEMA
  4. XOPENEX [Concomitant]
     Indication: ASTHMA
  5. ALL OTHER THERAPEUTIC PRODUCTS [Concomitant]

REACTIONS (2)
  - DRY SKIN [None]
  - RASH PAPULAR [None]
